FAERS Safety Report 15419527 (Version 1)
Quarter: 2018Q3

REPORT INFORMATION
  Report Type: Spontaneous
  Country: US (occurrence: US)
  Receive Date: 20180924
  Receipt Date: 20180924
  Transmission Date: 20181010
  Serious: No
  Sender: FDA-Public Use
  Company Number: US-SA-2018SA264679

PATIENT
  Sex: Male
  Weight: 56.6 kg

DRUGS (2)
  1. DUPIXENT [Suspect]
     Active Substance: DUPILUMAB
     Indication: DERMATITIS ATOPIC
     Dosage: 300 MG, QOW
     Dates: start: 20180706
  2. CEPHALEXIN [CEFALEXIN] [Concomitant]

REACTIONS (2)
  - Eczema [Recovering/Resolving]
  - Product use issue [Unknown]
